FAERS Safety Report 11917417 (Version 1)
Quarter: 2016Q1

REPORT INFORMATION
  Report Type: Spontaneous
  Country: US (occurrence: US)
  Receive Date: 20160114
  Receipt Date: 20160114
  Transmission Date: 20160526
  Serious: No
  Sender: FDA-Public Use
  Company Number: US-MEDA-2014120065

PATIENT
  Sex: Female

DRUGS (1)
  1. MUSE [Suspect]
     Active Substance: ALPROSTADIL

REACTIONS (2)
  - Exposure via partner [Unknown]
  - Oral discomfort [Unknown]

NARRATIVE: CASE EVENT DATE: 20141219
